FAERS Safety Report 8228917-0 (Version None)
Quarter: 2012Q1

REPORT INFORMATION
  Report Type: 
  Country: None (occurrence: None)
  Receive Date: 20120322
  Receipt Date: 20120320
  Transmission Date: 20120608
  Serious: Yes (Other)
  Sender: FDA-Public Use
  Company Number: GB-SANOFI-AVENTIS-2012SA012344

PATIENT
  Age: 75 Year
  Sex: Male
  Weight: 100 kg

DRUGS (13)
  1. VERAPAMIL [Suspect]
     Indication: ATRIAL FIBRILLATION
     Route: 065
  2. CYSTEINE HYDROCHLORIDE [Suspect]
     Route: 065
  3. FORMOTEROL FUMARATE [Suspect]
     Route: 065
  4. SPIRIVA [Concomitant]
     Indication: CHRONIC OBSTRUCTIVE PULMONARY DISEASE
     Route: 065
  5. BUDESONIDE/FORMOTEROL [Concomitant]
     Indication: CHRONIC OBSTRUCTIVE PULMONARY DISEASE
  6. WARFARIN SODIUM [Suspect]
     Indication: ATRIAL FIBRILLATION
     Route: 065
  7. ALBUTEROL [Suspect]
     Route: 065
  8. FUROSEMIDE [Suspect]
     Route: 065
  9. PREDNISOLONE [Suspect]
     Indication: CHRONIC OBSTRUCTIVE PULMONARY DISEASE
     Route: 065
  10. FORMOTEROL FUMARATE [Suspect]
     Route: 065
  11. METFORMIN HCL [Suspect]
     Route: 065
  12. ATORVASTATIN [Suspect]
     Route: 065
  13. RAMIPRIL [Suspect]
     Route: 065

REACTIONS (1)
  - HALLUCINATION [None]
